FAERS Safety Report 18692750 (Version 1)
Quarter: 2021Q1

REPORT INFORMATION
  Report Type: Spontaneous
  Country: ES (occurrence: ES)
  Receive Date: 20210104
  Receipt Date: 20210104
  Transmission Date: 20210419
  Serious: Yes (Hospitalization, Other)
  Sender: FDA-Public Use
  Company Number: ES-SUN PHARMACEUTICAL INDUSTRIES LTD-2020RR-273783

PATIENT
  Age: 73 Year
  Sex: Male

DRUGS (10)
  1. ZOMETA [Suspect]
     Active Substance: ZOLEDRONIC ACID
     Indication: PLASMA CELL MYELOMA
     Dosage: UNK
     Route: 065
     Dates: start: 201504
  2. LENALIDOMIDE [Concomitant]
     Active Substance: LENALIDOMIDE
     Indication: PLASMA CELL MYELOMA
     Dosage: 25 MILLIGRAM, EVERY 21 DAYS, SECOND LINE CHEMOTHERAPY
     Route: 065
  3. CALCIUM SUPPLEMENTS [Concomitant]
     Active Substance: CALCIUM
     Indication: PLASMA CELL MYELOMA
     Dosage: UNK, SECOND LINE CHEMOTHERAPY
     Route: 065
  4. PREDNISONE. [Suspect]
     Active Substance: PREDNISONE
     Indication: PLASMA CELL MYELOMA
     Dosage: UNK
     Route: 065
     Dates: start: 201504
  5. LENALIDOMIDE [Concomitant]
     Active Substance: LENALIDOMIDE
     Dosage: 10 CYCLES, THIRD LINE CHEMOTHERAPY
     Route: 065
  6. MELPHALAN. [Suspect]
     Active Substance: MELPHALAN
     Indication: PLASMA CELL MYELOMA
     Dosage: UNK
     Route: 065
     Dates: start: 201504
  7. DEXAMETASONE [Concomitant]
     Active Substance: DEXAMETHASONE
     Dosage: 10 CYCLES, THIRD LINE CHEMOTHERAPY
     Route: 065
  8. EPOETIN ALFA [Suspect]
     Active Substance: ERYTHROPOIETIN
     Indication: PLASMA CELL MYELOMA
     Dosage: UNK
     Route: 065
     Dates: start: 201504
  9. CARFILZOMIB [Concomitant]
     Active Substance: CARFILZOMIB
     Indication: PLASMA CELL MYELOMA
     Dosage: 10 CYCLES, THIRD LINE CHEMOTHERAPY
     Route: 065
  10. DEXAMETASONE [Concomitant]
     Active Substance: DEXAMETHASONE
     Indication: PLASMA CELL MYELOMA
     Dosage: WEEKLY FOR 7 CYCLES, SECOND LINE CHEMOTHERAPY
     Route: 065

REACTIONS (1)
  - Disease recurrence [Unknown]
